FAERS Safety Report 17180991 (Version 1)
Quarter: 2019Q4

REPORT INFORMATION
  Report Type: Spontaneous
  Country: US (occurrence: US)
  Receive Date: 20191219
  Receipt Date: 20191219
  Transmission Date: 20200122
  Serious: Yes (Other)
  Sender: FDA-Public Use
  Company Number: US-SA-2019SA349579

PATIENT
  Sex: Male

DRUGS (1)
  1. ZANTAC [Suspect]
     Active Substance: RANITIDINE HYDROCHLORIDE
     Dosage: 2 TABLETS OF ZANTAC 75 OR ZANTAC 150 PER DAY
     Dates: start: 2011

REACTIONS (4)
  - Impaired quality of life [Unknown]
  - Pain [Unknown]
  - Renal cancer [Unknown]
  - Anxiety [Unknown]
